FAERS Safety Report 5080541-7 (Version None)
Quarter: 2006Q3

REPORT INFORMATION
  Report Type: 
  Country: None (occurrence: None)
  Receive Date: 20060720
  Receipt Date: 20050705
  Transmission Date: 20061208
  Serious: Yes (Hospitalization)
  Sender: FDA-Public Use
  Company Number: 2004236358US

PATIENT
  Age: 48 Year
  Sex: Female
  Weight: 104.3273 kg

DRUGS (13)
  1. CELEBREX [Suspect]
     Indication: ILL-DEFINED DISORDER
     Dosage: 400 MG (200 MG, 2 IN 1 D)
     Dates: start: 20001201, end: 20010402
  2. NOVOLIN 70/30 (INSULIN HUMAN, INSULIN HUMAN INJECTION) [Concomitant]
  3. LORTAB [Concomitant]
  4. GLUCOPHAGE [Concomitant]
  5. REGLAN [Concomitant]
  6. PROTONIX [Concomitant]
  7. ELAVIL [Concomitant]
  8. SEREVENT [Concomitant]
  9. VENTOLIN [Concomitant]
  10. FLOVENT (FLUTCASONE PROPIONATE) [Concomitant]
  11. MONTELUKAST [Concomitant]
  12. CEPHALEXIN [Concomitant]
  13. FUROSEMIDE [Concomitant]

REACTIONS (1)
  - CEREBROVASCULAR ACCIDENT [None]
